FAERS Safety Report 5661296-1 (Version None)
Quarter: 2008Q1

REPORT INFORMATION
  Report Type: 
  Country: None (occurrence: None)
  Receive Date: 20080312
  Receipt Date: 20080221
  Transmission Date: 20080703
  Serious: Yes (Other)
  Sender: FDA-Public Use
  Company Number: CN-BAYER-200814063GPV

PATIENT
  Age: 51 Year
  Sex: Female
  Weight: 52 kg

DRUGS (1)
  1. GLUCOBAY [Suspect]
     Indication: TYPE 2 DIABETES MELLITUS
     Dosage: UNIT DOSE: 50 MG
     Route: 065
     Dates: start: 20080101

REACTIONS (1)
  - WEIGHT DECREASED [None]
